FAERS Safety Report 22091360 (Version 1)
Quarter: 2023Q1

REPORT INFORMATION
  Report Type: Other
  Country: CN (occurrence: None)
  Receive Date: 20230314
  Receipt Date: 20230314
  Transmission Date: 20230418
  Serious: Yes (Other)
  Sender: FDA-Public Use
  Company Number: CN-ROCHE-3304175

PATIENT
  Age: 53 Year
  Sex: Female

DRUGS (6)
  1. BEVACIZUMAB [Suspect]
     Active Substance: BEVACIZUMAB
     Indication: Lung adenocarcinoma stage III
     Route: 065
  2. CARBOPLATIN [Suspect]
     Active Substance: CARBOPLATIN
     Indication: Lung adenocarcinoma stage III
     Route: 065
  3. PEMETREXED [Suspect]
     Active Substance: PEMETREXED
     Indication: Lung adenocarcinoma stage III
     Route: 065
  4. GEFITINIB [Concomitant]
     Active Substance: GEFITINIB
  5. SINTILIMAB [Concomitant]
     Active Substance: SINTILIMAB
  6. OSIMERTINIB [Concomitant]
     Active Substance: OSIMERTINIB

REACTIONS (6)
  - Urinary retention [Unknown]
  - Disease progression [Unknown]
  - Gamma-glutamyltransferase increased [Unknown]
  - Vomiting [Unknown]
  - Hypersensitivity [Unknown]
  - Gene mutation [Unknown]
